FAERS Safety Report 11574185 (Version 1)
Quarter: 2015Q3

REPORT INFORMATION
  Report Type: Spontaneous
  Country: US (occurrence: US)
  Receive Date: 20150930
  Receipt Date: 20150930
  Transmission Date: 20151125
  Serious: No
  Sender: FDA-Public Use
  Company Number: US-SUN PHARMACEUTICAL INDUSTRIES LTD-2015US-98998

PATIENT
  Sex: Female

DRUGS (2)
  1. LORATADINE. [Suspect]
     Active Substance: LORATADINE
     Indication: PRODUCT USED FOR UNKNOWN INDICATION
     Dosage: 1 DF AT 8:50 AM AND 1 DF AT 1:50 PM (10 MG TABLET )
     Route: 065
     Dates: start: 20150602
  2. MORPHINE [Suspect]
     Active Substance: MORPHINE
     Indication: UPPER LIMB FRACTURE
     Dosage: UNK
     Route: 065
     Dates: start: 2015

REACTIONS (2)
  - Somnolence [Unknown]
  - Accidental overdose [Unknown]

NARRATIVE: CASE EVENT DATE: 201506
